FAERS Safety Report 4581885-5 (Version None)
Quarter: 2005Q1

REPORT INFORMATION
  Report Type: 
  Country: None (occurrence: None)
  Receive Date: 20050214
  Receipt Date: 20040326
  Transmission Date: 20050727
  Serious: No
  Sender: FDA-Public Use
  Company Number: US-GLAXOSMITHKLINE-A0505087A

PATIENT
  Age: 15 Year
  Sex: Male

DRUGS (2)
  1. LAMICTAL [Suspect]
     Indication: EPILEPSY
     Dosage: 350MG PER DAY
     Route: 048
     Dates: start: 20030501
  2. AMPICILLIN [Concomitant]

REACTIONS (5)
  - DRUG INEFFECTIVE [None]
  - DYSKINESIA [None]
  - INFLUENZA [None]
  - MEMORY IMPAIRMENT [None]
  - THINKING ABNORMAL [None]
